FAERS Safety Report 14360242 (Version 2)
Quarter: 2018Q1

REPORT INFORMATION
  Report Type: Not Available
  Country: US (occurrence: US)
  Receive Date: 20180106
  Receipt Date: 20180122
  Transmission Date: 20180509
  Serious: No
  Sender: FDA-Public Use
  Company Number: US-NEUROCRINE BIOSCIENCES INC.-2017NBI01548

PATIENT
  Age: 71 Year
  Sex: Female

DRUGS (2)
  1. INGREZZA [Suspect]
     Active Substance: VALBENAZINE
     Indication: TARDIVE DYSKINESIA
     Route: 048
     Dates: start: 20171018, end: 20171225
  2. HALDOL [Concomitant]
     Active Substance: HALOPERIDOL

REACTIONS (2)
  - Asthenia [Unknown]
  - Somnolence [Unknown]

NARRATIVE: CASE EVENT DATE: 201710
